FAERS Safety Report 4327863-2 (Version None)
Quarter: 2004Q1

REPORT INFORMATION
  Report Type: 
  Country: None (occurrence: None)
  Receive Date: 20040325
  Receipt Date: 20040309
  Transmission Date: 20041129
  Serious: Yes (Hospitalization)
  Sender: FDA-Public Use
  Company Number: AU-JNJFOC-20040304256

PATIENT
  Age: 82 Year
  Sex: Female

DRUGS (16)
  1. TRAMADOL HCL [Suspect]
     Indication: PAIN
     Dosage: SEE IMAGE
     Dates: start: 20030704, end: 20030707
  2. TRAMADOL HCL [Suspect]
     Indication: PAIN
     Dosage: SEE IMAGE
     Dates: start: 20030707, end: 20030716
  3. TRAMADOL HCL [Suspect]
     Indication: PAIN
     Dosage: SEE IMAGE
     Dates: start: 20030713, end: 20030717
  4. ALDOMET [Concomitant]
  5. ARISTOCORT (TRIAMCINOLONE) [Concomitant]
  6. METOPROLOL TARTRATE [Concomitant]
  7. CODALGIN FORTE (CODALGIN FORTE) [Concomitant]
  8. COLESTIPOL HYDROCHLORIDE (COLESTIPOL HYDROCHLORIDE) [Concomitant]
  9. COUMADIN [Concomitant]
  10. FUROSEMIDE [Concomitant]
  11. IBILEX (CEFALEXIN) [Concomitant]
  12. KARVEA (IRBESARTAN) [Concomitant]
  13. SIMVASTATIN [Concomitant]
  14. NITROLINGUAL (GLYCERYL TRINITRATE) [Concomitant]
  15. PANAMAX (PARACETAMOL) [Concomitant]
  16. RANI (RANITIDINE HYDROCHLORIDE) [Concomitant]

REACTIONS (4)
  - ATRIAL FIBRILLATION [None]
  - ATRIOVENTRICULAR BLOCK [None]
  - CONVULSION [None]
  - PALPITATIONS [None]
